FAERS Safety Report 8069995-1 (Version None)
Quarter: 2012Q1

REPORT INFORMATION
  Report Type: 
  Country: None (occurrence: None)
  Receive Date: 20120119
  Receipt Date: 20120110
  Transmission Date: 20120608
  Serious: Yes (Death, Hospitalization, Other)
  Sender: FDA-Public Use
  Company Number: ADR-2011-11289

PATIENT
  Age: 4 Year
  Sex: Male

DRUGS (2)
  1. LIORESAL [Suspect]
     Indication: BRAIN INJURY
     Dosage: 224.0 MCG, DAILY, INTRA
     Route: 037
  2. LIORESAL [Suspect]
     Indication: MUSCLE SPASTICITY
     Dosage: 224.0 MCG, DAILY, INTRA
     Route: 037

REACTIONS (9)
  - AUTONOMIC NERVOUS SYSTEM IMBALANCE [None]
  - NEURODEGENERATIVE DISORDER [None]
  - CEREBRAL ATROPHY [None]
  - HYDROCEPHALUS [None]
  - BRAIN OEDEMA [None]
  - URINARY TRACT INFECTION [None]
  - CONDITION AGGRAVATED [None]
  - BRAIN SCAN ABNORMAL [None]
  - MENTAL STATUS CHANGES [None]
